FAERS Safety Report 6643150-1 (Version None)
Quarter: 2010Q1

REPORT INFORMATION
  Report Type: 
  Country: None (occurrence: None)
  Receive Date: 20100319
  Receipt Date: 20100309
  Transmission Date: 20100710
  Serious: Yes (Hospitalization, Other)
  Sender: FDA-Public Use
  Company Number: PHEH2010US02788

PATIENT
  Sex: Male

DRUGS (23)
  1. GLEEVEC [Suspect]
     Indication: CHRONIC MYELOID LEUKAEMIA
     Dosage: 400 MG, QD
     Route: 048
     Dates: start: 20061101
  2. ALLOPURINOL [Concomitant]
     Dosage: 150 MG, QD
  3. ASPIRIN [Concomitant]
     Dosage: 81 MG, QD
  4. PLAVIX [Concomitant]
     Dosage: 75 MG, QD
  5. FLONASE [Concomitant]
     Dosage: 2 UNK, QD
  6. NITROGLYCERIN [Concomitant]
     Dosage: 0.4 MG, PRN
  7. PRAVASTATIN [Concomitant]
     Dosage: 80 MG, QHS
  8. EFFEXOR XR [Concomitant]
     Dosage: 225 MG, QD
  9. ATENOLOL [Concomitant]
     Dosage: 50 MG, UNK
  10. DIGOXIN [Concomitant]
     Dosage: 0.125 MG, QD
  11. ADVAIR DISKUS 100/50 [Concomitant]
     Dosage: 250/50 MG BID
  12. NEURONTIN [Concomitant]
  13. NPH INSULIN [Concomitant]
  14. IMDUR [Concomitant]
     Dosage: 60 MG, QD
  15. PRILOSEC [Concomitant]
     Dosage: 20 MG, QD
  16. SPIRONOLACTONE [Concomitant]
     Dosage: 25 MG, QD
  17. BUMEX [Concomitant]
     Dosage: 2 MG, QD
  18. POTASSIUM [Concomitant]
     Dosage: 10 MEQ, QD
  19. COUMADIN [Concomitant]
     Dosage: 5 MG, QD
  20. AMIODARONE HCL [Concomitant]
     Dosage: 200 MG, QD
  21. INSULIN [Concomitant]
     Dosage: 30 U, UNK
  22. FLOMAX [Concomitant]
  23. MAGNESIUM [Concomitant]

REACTIONS (6)
  - BLOOD CREATININE INCREASED [None]
  - CARDIAC FAILURE CONGESTIVE [None]
  - CEREBROVASCULAR ACCIDENT [None]
  - OBESITY [None]
  - OEDEMA [None]
  - SKIN DISORDER [None]
